FAERS Safety Report 8806277 (Version 1)
Quarter: 2012Q4

REPORT INFORMATION
  Report Type: Spontaneous
  Country: US (occurrence: None)
  Receive Date: 20120919
  Receipt Date: 20120919
  Transmission Date: 20130627
  Serious: No
  Sender: FDA-Public Use
  Company Number: None

PATIENT
  Sex: Male

DRUGS (2)
  1. RANEXA [Suspect]
     Dosage: EXTENDED RELEASE
  2. TRANEXAMIC ACID [Suspect]

REACTIONS (2)
  - Intercepted drug dispensing error [None]
  - Circumstance or information capable of leading to medication error [None]
